FAERS Safety Report 6015768-0 (Version None)
Quarter: 2008Q4

REPORT INFORMATION
  Report Type: 
  Country: None (occurrence: None)
  Receive Date: 20081222
  Receipt Date: 20080721
  Transmission Date: 20090506
  Serious: No
  Sender: FDA-Public Use
  Company Number: US-BAYER-200813125BCC

PATIENT
  Age: 58 Year
  Sex: Female
  Weight: 52 kg

DRUGS (5)
  1. ALEVE [Suspect]
     Indication: MUSCLE SPASMS
     Dosage: TOTAL DAILY DOSE: 220 MG  UNIT DOSE: 220 MG
     Route: 048
     Dates: start: 20080501
  2. ALEVE [Suspect]
     Dosage: TOTAL DAILY DOSE: 220 MG  UNIT DOSE: 220 MG
     Route: 048
     Dates: start: 20080721, end: 20080721
  3. ADVAIR DISKUS 250/50 [Concomitant]
  4. SPIRIVA [Concomitant]
  5. PROVENTIL [Concomitant]

REACTIONS (7)
  - ABDOMINAL DISTENSION [None]
  - BREAST SWELLING [None]
  - ERYTHEMA [None]
  - HYPERSENSITIVITY [None]
  - LOCAL SWELLING [None]
  - OEDEMA PERIPHERAL [None]
  - PRURITUS [None]
